FAERS Safety Report 12444230 (Version 3)
Quarter: 2019Q2

REPORT INFORMATION
  Report Type: Spontaneous
  Country: US (occurrence: US)
  Receive Date: 20160607
  Receipt Date: 20190502
  Transmission Date: 20190711
  Serious: No
  Sender: FDA-Public Use
  Company Number: US-SA-2016SA088924

PATIENT
  Age: 63 Year
  Sex: Male

DRUGS (2)
  1. TOUJEO [Suspect]
     Active Substance: INSULIN GLARGINE
     Indication: DIABETES MELLITUS
     Dosage: 10 DF,QD
     Route: 065
     Dates: start: 201604
  2. TOUJEO [Suspect]
     Active Substance: INSULIN GLARGINE
     Dosage: 16 DF,QD
     Route: 065
     Dates: start: 2016

REACTIONS (2)
  - Blood glucose increased [Not Recovered/Not Resolved]
  - Treatment noncompliance [Unknown]

NARRATIVE: CASE EVENT DATE: 2016
